FAERS Safety Report 6551162-1 (Version None)
Quarter: 2010Q1

REPORT INFORMATION
  Report Type: 
  Country: None (occurrence: None)
  Receive Date: 20100121
  Receipt Date: 20100110
  Transmission Date: 20100710
  Serious: Yes (Death)
  Sender: FDA-Public Use
  Company Number: A-CH2010-33123

PATIENT
  Age: 30 Year
  Sex: Female

DRUGS (1)
  1. TRACLEER [Suspect]
     Indication: SKIN ULCER
     Dosage: ORAL
     Route: 048
     Dates: start: 20090401, end: 20091201

REACTIONS (2)
  - H1N1 INFLUENZA [None]
  - PULMONARY EMBOLISM [None]
